FAERS Safety Report 9657609 (Version 2)
Quarter: 2013Q4

REPORT INFORMATION
  Report Type: Spontaneous
  Country: US (occurrence: US)
  Receive Date: 20131030
  Receipt Date: 20131030
  Transmission Date: 20140711
  Serious: Yes (Other)
  Sender: FDA-Public Use
  Company Number: US-NAPPMUNDI-USA-2010-0043660

PATIENT
  Age: 18 Year
  Sex: Female

DRUGS (4)
  1. OXYCONTIN TABLETS [Suspect]
     Indication: PRODUCT USED FOR UNKNOWN INDICATION
  2. OXYCODONE HYDROCHLORIDE (SIMILAR TO NDA 20-553) [Suspect]
     Indication: PRODUCT USED FOR UNKNOWN INDICATION
  3. XANAX [Suspect]
     Indication: PRODUCT USED FOR UNKNOWN INDICATION
  4. MARIJUANA [Suspect]
     Indication: DRUG ABUSE

REACTIONS (5)
  - Drug abuse [Unknown]
  - Substance abuse [Unknown]
  - Road traffic accident [Unknown]
  - Impaired driving ability [Unknown]
  - Euphoric mood [Unknown]
